FAERS Safety Report 10249564 (Version 1)
Quarter: 2014Q2

REPORT INFORMATION
  Report Type: Spontaneous
  Country: US (occurrence: US)
  Receive Date: 20140620
  Receipt Date: 20140620
  Transmission Date: 20141212
  Serious: No
  Sender: FDA-Public Use
  Company Number: US-PFIZER INC-2014170053

PATIENT
  Age: 57 Year
  Sex: Female
  Weight: 70.3 kg

DRUGS (4)
  1. EFFEXOR XR [Suspect]
     Indication: DEPRESSION
     Dosage: 150 MG, DAILY
  2. EFFEXOR XR [Suspect]
     Dosage: 75 MG, DAILY
  3. EFFEXOR XR [Suspect]
     Dosage: 37.5 MG, DAILY
     Dates: end: 20140616
  4. OMEPRAZOLE [Concomitant]
     Dosage: 20 MG, UNK

REACTIONS (3)
  - Feeling abnormal [Unknown]
  - Dizziness [Unknown]
  - Vertigo [Unknown]
